FAERS Safety Report 7144963-2 (Version None)
Quarter: 2010Q4

REPORT INFORMATION
  Report Type: 
  Country: None (occurrence: None)
  Receive Date: 20101208
  Receipt Date: 20101126
  Transmission Date: 20110411
  Serious: Yes (Hospitalization)
  Sender: FDA-Public Use
  Company Number: JP-PFIZER INC-2010158052

PATIENT
  Age: 80 Year
  Sex: Female

DRUGS (4)
  1. AZULFIDINE [Suspect]
     Indication: RHEUMATOID ARTHRITIS
     Dosage: 1250 MG, DAILY
     Route: 048
     Dates: start: 20100903, end: 20100905
  2. ASPIRIN [Concomitant]
     Dosage: 100 MG, 1X/DAY
     Route: 048
     Dates: end: 20100905
  3. RIMATIL [Concomitant]
     Dosage: 50 MG, 3X/DAY
     Route: 048
     Dates: start: 20090716, end: 20100905
  4. CELECOXIB [Concomitant]
     Dosage: 200 MG, 2X/DAY
     Route: 048
     Dates: start: 20090716, end: 20100905

REACTIONS (2)
  - JAUNDICE [None]
  - LIVER DISORDER [None]
